FAERS Safety Report 12502101 (Version 2)
Quarter: 2016Q3

REPORT INFORMATION
  Report Type: Report from Study
  Country: US (occurrence: US)
  Receive Date: 20160627
  Receipt Date: 20160705
  Transmission Date: 20161109
  Serious: No
  Sender: FDA-Public Use
  Company Number: US-VERTEX PHARMACEUTICALS-2013-010733

PATIENT
  Age: 10 Year
  Sex: Female
  Weight: 69 kg

DRUGS (12)
  1. AQUADEKS [Concomitant]
     Active Substance: MINERALS\VITAMINS
  2. KALYDECO [Suspect]
     Active Substance: IVACAFTOR
     Indication: CYSTIC FIBROSIS
     Dosage: 150 MG, BID
     Route: 048
     Dates: start: 20120829
  3. ZENPEP [Concomitant]
     Active Substance: PANCRELIPASE AMYLASE\PANCRELIPASE LIPASE\PANCRELIPASE PROTEASE
     Dosage: 10000 IU, UNK
  4. PULMOZYME [Concomitant]
     Active Substance: DORNASE ALFA
     Indication: CYSTIC FIBROSIS
     Dosage: 2.5 MG, QD
     Route: 055
     Dates: start: 20061108
  5. FLONASE [Concomitant]
     Active Substance: FLUTICASONE PROPIONATE
     Indication: RHINITIS ALLERGIC
     Dosage: 50 ?G, BID
     Route: 045
     Dates: start: 20080827
  6. CHILDRENS TYLENOL [Concomitant]
     Active Substance: ACETAMINOPHEN
     Route: 048
  7. CLARITIN [Concomitant]
     Active Substance: LORATADINE
     Route: 048
  8. ALBUTEROL. [Concomitant]
     Active Substance: ALBUTEROL
     Indication: CYSTIC FIBROSIS
     Dosage: 90 ?G, 2 PUFF PRN
     Route: 055
     Dates: start: 20061108
  9. SODIUM CHLORIDE. [Concomitant]
     Active Substance: SODIUM CHLORIDE
     Indication: CYSTIC FIBROSIS
     Dosage: 4 ML, QD
     Route: 055
     Dates: start: 20100216
  10. BACTRIM [Concomitant]
     Active Substance: SULFAMETHOXAZOLE\TRIMETHOPRIM
     Indication: COUGH
     Dosage: UNK
     Dates: start: 201309
  11. VITAMIN D2 [Concomitant]
     Active Substance: ERGOCALCIFEROL
     Route: 048
  12. FISH OIL [Concomitant]
     Active Substance: FISH OIL

REACTIONS (1)
  - Cataract subcapsular [Recovered/Resolved]

NARRATIVE: CASE EVENT DATE: 20131023
